FAERS Safety Report 25104459 (Version 2)
Quarter: 2025Q3

REPORT INFORMATION
  Report Type: Report from Study
  Country: PH (occurrence: PH)
  Receive Date: 20250321
  Receipt Date: 20250803
  Transmission Date: 20251021
  Serious: Yes (Death, Other)
  Sender: ALEXION PHARMACEUTICALS
  Company Number: PH-AstraZeneca-CH-00830671A

PATIENT
  Age: 57 Year
  Sex: Male

DRUGS (1)
  1. OSIMERTINIB [Suspect]
     Active Substance: OSIMERTINIB
     Indication: Lung neoplasm malignant
     Dates: start: 202409, end: 20250318

REACTIONS (3)
  - Pneumonia [Fatal]
  - Oncologic complication [Fatal]
  - Death [Fatal]

NARRATIVE: CASE EVENT DATE: 20250318
